FAERS Safety Report 19837220 (Version 4)
Quarter: 2021Q4

REPORT INFORMATION
  Report Type: Report from Study
  Country: CA (occurrence: CA)
  Receive Date: 20210914
  Receipt Date: 20211216
  Transmission Date: 20220303
  Serious: Yes (Hospitalization)
  Sender: FDA-Public Use
  Company Number: CA-JNJFOC-20210917372

PATIENT
  Age: 8 Year
  Sex: Female
  Weight: 22.6 kg

DRUGS (3)
  1. REMICADE [Suspect]
     Active Substance: INFLIXIMAB
     Indication: Crohn^s disease
     Route: 042
     Dates: start: 20210825
  2. REMICADE [Suspect]
     Active Substance: INFLIXIMAB
     Route: 042
     Dates: start: 2021
  3. REMICADE [Suspect]
     Active Substance: INFLIXIMAB
     Dosage: 5TH INFUSION
     Route: 042
     Dates: start: 2021

REACTIONS (4)
  - Crohn^s disease [Recovering/Resolving]
  - Haemoglobin decreased [Unknown]
  - Malaise [Unknown]
  - Flat affect [Unknown]

NARRATIVE: CASE EVENT DATE: 20210101
